FAERS Safety Report 11457456 (Version 1)
Quarter: 2015Q3

REPORT INFORMATION
  Report Type: Spontaneous
  Country: US (occurrence: GB)
  Receive Date: 20150904
  Receipt Date: 20150904
  Transmission Date: 20151125
  Serious: Yes (Other)
  Sender: FDA-Public Use
  Company Number: GB-TEVA-588697ACC

PATIENT
  Age: 61 Year
  Sex: Female
  Weight: 66 kg

DRUGS (6)
  1. XELODA [Suspect]
     Active Substance: CAPECITABINE
     Indication: GASTRIC CANCER
     Dosage: CYCLE 1 (21 DAYS), MOST RECENT DOSE ADMINISTERED ON 02/MAY/2013
     Route: 048
     Dates: start: 20130502
  2. AVASTIN [Suspect]
     Active Substance: BEVACIZUMAB
     Indication: GASTROOESOPHAGEAL CANCER
     Dosage: 246 MILLIGRAM DAILY; CYCLE 1 (21 DAYS), MOST RECENT DOSE ADMINISTERED ON 02/MAY/2013,
     Route: 042
     Dates: start: 20130502
  3. EPIRUBICIN [Suspect]
     Active Substance: EPIRUBICIN
     Indication: GASTRIC CANCER
     Dosage: 4.1905 MILLIGRAM DAILY; CYCLE 1 (21 DAYS), MOST RECENT DOSE ADMINISTERED ON 02/MAY/2013
     Route: 042
     Dates: start: 20130502
  4. LANSOPRAZOLE. [Suspect]
     Active Substance: LANSOPRAZOLE
     Indication: PRODUCT USED FOR UNKNOWN INDICATION
     Route: 048
  5. CISPLATIN. [Suspect]
     Active Substance: CISPLATIN
     Indication: GASTRIC CANCER
     Dosage: 4.7619 MILLIGRAM DAILY; CYCLE 1 (21 DAYS), MOST RECENT DOSE ADMINISTERED ON 02/MAY/2013
     Route: 042
     Dates: start: 20130502
  6. AVASTIN [Suspect]
     Active Substance: BEVACIZUMAB
     Indication: ADENOCARCINOMA GASTRIC

REACTIONS (1)
  - Axillary vein thrombosis [Not Recovered/Not Resolved]
